FAERS Safety Report 6689701-2 (Version None)
Quarter: 2010Q2

REPORT INFORMATION
  Report Type: 
  Country: None (occurrence: None)
  Receive Date: 20100421
  Receipt Date: 20100413
  Transmission Date: 20101027
  Serious: Yes (Death, Other)
  Sender: FDA-Public Use
  Company Number: US-TEVA-231110USA

PATIENT
  Sex: Female

DRUGS (1)
  1. TAMOXIFEN CITRATE 20MG TABLETS [Suspect]
     Route: 048

REACTIONS (8)
  - BLOOD OESTROGEN INCREASED [None]
  - CEREBROVASCULAR ACCIDENT [None]
  - COMA [None]
  - DEATH [None]
  - FALL [None]
  - LUNG NEOPLASM [None]
  - MALAISE [None]
  - MYOCARDIAL INFARCTION [None]
